FAERS Safety Report 7104839-3 (Version None)
Quarter: 2010Q4

REPORT INFORMATION
  Report Type: 
  Country: None (occurrence: None)
  Receive Date: 20101116
  Receipt Date: 20101102
  Transmission Date: 20110411
  Serious: Yes (Hospitalization)
  Sender: FDA-Public Use
  Company Number: US-ELI_LILLY_AND_COMPANY-US_0508121234

PATIENT
  Age: 69 Year
  Sex: Male
  Weight: 121.82 kg

DRUGS (30)
  1. BYETTA [Suspect]
     Indication: DIABETES MELLITUS
     Dosage: 5 UG, 2/D
     Route: 058
     Dates: start: 20050808, end: 20050813
  2. PIOGLITAZONE [Concomitant]
     Dosage: 30 MG, DAILY (1/D)
     Route: 048
     Dates: end: 20050811
  3. GLUCOPHAGE [Concomitant]
     Dosage: 500 MG, 2/D
     Route: 048
     Dates: end: 20050811
  4. HUMULIN N [Concomitant]
     Dosage: 45 U, EACH MORNING
     Route: 058
  5. HUMULIN N [Concomitant]
     Dosage: 20 U, EACH EVENING
  6. PAXIL [Concomitant]
  7. PRIMIDONE [Concomitant]
  8. TOPROL-XL [Concomitant]
  9. PLAVIX [Concomitant]
  10. ASPIRIN [Concomitant]
  11. ATIVAN [Concomitant]
  12. ZETIA [Concomitant]
  13. REMICADE [Concomitant]
  14. FLOMAX [Concomitant]
  15. SYNTHROID [Concomitant]
  16. AVODART [Concomitant]
  17. NEURONTIN [Concomitant]
  18. TEMAZEPAM [Concomitant]
  19. ADVIL [Concomitant]
  20. MECLIZINE [Concomitant]
  21. ASPIRIN [Concomitant]
  22. LOVASTATIN [Concomitant]
     Dosage: 40 MG, DAILY (1/D)
     Route: 048
  23. IRBESARTAN [Concomitant]
     Dosage: 150 MG, EACH EVENING
     Route: 048
  24. CLOPIDOGREL [Concomitant]
     Dosage: 75 MG, DAILY (1/D)
     Route: 048
  25. EZETIMIBE [Concomitant]
     Dosage: 10 MG, DAILY (1/D)
     Route: 048
  26. ESOMEPRAZOLE [Concomitant]
     Dosage: 40 MG, DAILY (1/D)
     Route: 048
  27. INFLIXIMAB [Concomitant]
  28. INSULIN ASPART [Concomitant]
     Dosage: UNK, AS NEEDED
  29. METOPROLOL [Concomitant]
     Dosage: 50 MG, DAILY (1/D)
     Route: 048
  30. GABAPENTIN [Concomitant]
     Dosage: 1200 MG, DAILY (1/D)
     Route: 048

REACTIONS (5)
  - ABASIA [None]
  - FALL [None]
  - HEAD INJURY [None]
  - NON-CARDIAC CHEST PAIN [None]
  - PANCREATITIS ACUTE [None]
